FAERS Safety Report 6498511-0 (Version None)
Quarter: 2009Q4

REPORT INFORMATION
  Report Type: 
  Country: None (occurrence: None)
  Receive Date: 20091215
  Receipt Date: 20091209
  Transmission Date: 20100525
  Serious: Yes (Hospitalization)
  Sender: FDA-Public Use
  Company Number: SE-MERCK-0912SWE00009

PATIENT
  Age: 69 Year
  Sex: Female

DRUGS (2)
  1. TRUSOPT [Suspect]
     Route: 047
     Dates: start: 20091108, end: 20091108
  2. LORATADINE [Concomitant]
     Route: 065

REACTIONS (1)
  - ANAPHYLACTIC REACTION [None]
